FAERS Safety Report 12267992 (Version 1)
Quarter: 2016Q2

REPORT INFORMATION
  Report Type: Spontaneous
  Country: US (occurrence: US)
  Receive Date: 20160414
  Receipt Date: 20160414
  Transmission Date: 20160815
  Serious: No
  Sender: FDA-Public Use
  Company Number: US-MDT-ADR-2015-02349

PATIENT
  Sex: Female

DRUGS (23)
  1. BACLOFEN. [Suspect]
     Active Substance: BACLOFEN
     Dosage: 20 MG
     Route: 048
     Dates: start: 20131021
  2. GILENVA [Suspect]
     Active Substance: UNSPECIFIED INGREDIENT
     Dosage: 0.5 MG CAPSULE
     Route: 048
  3. SYMMETREL [Suspect]
     Active Substance: AMANTADINE HYDROCHLORIDE
     Dosage: 100 MG
     Route: 048
  4. COMPOUNDED BACLOFEN [Suspect]
     Active Substance: BACLOFEN
     Dosage: 859.3 MCG/DAY
     Route: 037
     Dates: start: 20000420
  5. BACLOFEN. [Suspect]
     Active Substance: BACLOFEN
     Dosage: 10 MG
     Route: 048
  6. TIZANIDINE HCL [Suspect]
     Active Substance: TIZANIDINE HYDROCHLORIDE
     Dosage: 4 MG
     Route: 048
     Dates: start: 20131226
  7. FENTANYL. [Suspect]
     Active Substance: FENTANYL
     Dosage: 100 MCG/HR
     Route: 062
     Dates: start: 20131213
  8. VALIUM [Suspect]
     Active Substance: DIAZEPAM
     Dosage: 5 MG
  9. GILENYA [Suspect]
     Active Substance: FINGOLIMOD HYDROCHLORIDE
     Dosage: 0.5 MG
     Route: 048
     Dates: start: 20131106
  10. STERIOID [Suspect]
     Active Substance: UNSPECIFIED INGREDIENT
  11. PROMETHAZINE HCL [Suspect]
     Active Substance: PROMETHAZINE HYDROCHLORIDE
     Dosage: 1 TAB EVERY 4-6 HRS
     Route: 048
     Dates: start: 20140212
  12. NORVASC [Suspect]
     Active Substance: AMLODIPINE BESYLATE
     Dosage: 5 MG
     Route: 048
  13. ZOLPIDEM TARTRATE. [Suspect]
     Active Substance: ZOLPIDEM TARTRATE
     Dosage: 10 MG
     Route: 048
  14. DIAZEPAM. [Suspect]
     Active Substance: DIAZEPAM
     Dosage: 5 MG
     Route: 048
     Dates: start: 20130918
  15. LYRICA [Suspect]
     Active Substance: PREGABALIN
     Dosage: 75 MG
     Route: 048
  16. HYDROMORPHONE HCL [Suspect]
     Active Substance: HYDROMORPHONE HYDROCHLORIDE
     Dosage: 2 MG
     Route: 048
  17. FOSAMAX [Suspect]
     Active Substance: ALENDRONATE SODIUM
     Dosage: 70MG
     Route: 048
  18. AMANTADINE HCL [Suspect]
     Active Substance: AMANTADINE HYDROCHLORIDE
     Dosage: 100 MG
     Route: 048
     Dates: start: 20140204
  19. STOOL SOFTENER [Suspect]
     Active Substance: DOCUSATE CALCIUM
     Dosage: 100 MG
     Route: 048
     Dates: start: 20130501
  20. OXYBUTYNIN CHLORIDE. [Suspect]
     Active Substance: OXYBUTYNIN CHLORIDE
     Dosage: 15 MG
     Route: 048
  21. PROZAC [Suspect]
     Active Substance: FLUOXETINE HYDROCHLORIDE
     Dosage: 40 MG
     Route: 048
  22. ZANAFLEX [Suspect]
     Active Substance: TIZANIDINE HYDROCHLORIDE
     Dosage: 4 MG
     Route: 048
  23. OXYBUTYNIN CHLORIDE. [Suspect]
     Active Substance: OXYBUTYNIN CHLORIDE
     Dosage: 15 MG
     Route: 048
     Dates: start: 20130906

REACTIONS (2)
  - Implant site extravasation [Unknown]
  - Vision blurred [Unknown]

NARRATIVE: CASE EVENT DATE: 2013
